FAERS Safety Report 16571731 (Version 1)
Quarter: 2019Q3

REPORT INFORMATION
  Report Type: Spontaneous
  Country: US (occurrence: US)
  Receive Date: 20190715
  Receipt Date: 20190715
  Transmission Date: 20191004
  Serious: No
  Sender: FDA-Public Use
  Company Number: US-PFIZER INC-2019297354

PATIENT
  Age: 66 Year
  Sex: Male
  Weight: 97.52 kg

DRUGS (8)
  1. CHANTIX [Interacting]
     Active Substance: VARENICLINE TARTRATE
     Dosage: 1 MG, 2X/DAY
     Route: 048
  2. CHANTIX [Interacting]
     Active Substance: VARENICLINE TARTRATE
     Dosage: 1 MG, 1X/DAY
     Route: 048
  3. CHANTIX [Interacting]
     Active Substance: VARENICLINE TARTRATE
     Dosage: 1 MG, DAILY
     Route: 048
  4. CHANTIX [Interacting]
     Active Substance: VARENICLINE TARTRATE
     Dosage: 1 MG, 2X/DAY
     Route: 048
     Dates: end: 2019
  5. CHANTIX [Interacting]
     Active Substance: VARENICLINE TARTRATE
     Dosage: 0.5 MG, 2X/DAY
     Route: 048
  6. LYRICA [Interacting]
     Active Substance: PREGABALIN
     Indication: NEUROPATHY PERIPHERAL
     Dosage: UNK
     Dates: start: 2012
  7. CHANTIX [Suspect]
     Active Substance: VARENICLINE TARTRATE
     Indication: SMOKING CESSATION THERAPY
     Dosage: 0.5 MG, DAILY
     Route: 048
     Dates: start: 201905
  8. LYRICA [Interacting]
     Active Substance: PREGABALIN
     Indication: MUSCLE TWITCHING

REACTIONS (3)
  - Nausea [Not Recovered/Not Resolved]
  - Off label use [Unknown]
  - Inhibitory drug interaction [Recovered/Resolved]

NARRATIVE: CASE EVENT DATE: 201905
